FAERS Safety Report 10046779 (Version 2)
Quarter: 2014Q2

REPORT INFORMATION
  Report Type: Report from Study
  Country: BR (occurrence: BR)
  Receive Date: 20140331
  Receipt Date: 20140608
  Transmission Date: 20141212
  Serious: Yes (Other)
  Sender: FDA-Public Use
  Company Number: PHHY2014BR036319

PATIENT
  Sex: Female
  Weight: 50 kg

DRUGS (10)
  1. DIOVAN HCT [Suspect]
     Indication: HYPERTENSION
     Dosage: 2 DF, A DAY (80 MG VALS/12.5 MG HCT)
     Route: 048
  2. DIOVAN [Suspect]
     Indication: HYPERTENSION
     Dosage: 2 DF, (SATURDAY)
     Route: 048
  3. NALOXONA [Concomitant]
     Indication: NEOPLASM MALIGNANT
     Dosage: UNK UKN, UNK
  4. LYRICA [Concomitant]
     Indication: FIBROMYALGIA
     Dosage: 2 DF, A DAY (75 MG)
     Route: 048
  5. LYRICA [Concomitant]
     Indication: RHEUMATIC DISORDER
  6. SEDILAX [Concomitant]
     Indication: MUSCLE RELAXANT THERAPY
     Dosage: UNK UKN, 1 TO 3 TABLETS A DAY
     Route: 048
  7. SEDILAX [Concomitant]
     Indication: ANALGESIC THERAPY
  8. OMEGA 3 6 9                        /06597401/ [Concomitant]
     Indication: MALAISE
     Dosage: 3 DF, A DAY
     Route: 048
  9. CIPRO//CIPROFLOXACIN [Concomitant]
     Dosage: 1 DF, A DAY (PATIENT USED THE MEDICATION 3 TIMES A YEAR)
     Route: 048
  10. NALTREXONE [Concomitant]
     Indication: ANALGESIC THERAPY
     Dosage: 1 DF, A DAY (4.5 MG)
     Route: 048

REACTIONS (15)
  - Nerve root injury [Recovered/Resolved]
  - Swelling face [Recovered/Resolved]
  - Scoliosis [Recovered/Resolved]
  - Ligament disorder [Recovered/Resolved]
  - Neck pain [Recovered/Resolved]
  - Memory impairment [Recovered/Resolved]
  - Malaise [Recovered/Resolved]
  - Wrong drug administered [Unknown]
  - Back disorder [Recovered/Resolved]
  - Blood pressure increased [Recovered/Resolved]
  - Visual impairment [Recovered/Resolved]
  - Chest pain [Recovered/Resolved]
  - Vomiting [Recovered/Resolved]
  - Eye swelling [Recovered/Resolved]
  - Dizziness [Recovered/Resolved]
